FAERS Safety Report 7544814-8 (Version None)
Quarter: 2011Q2

REPORT INFORMATION
  Report Type: 
  Country: None (occurrence: None)
  Receive Date: 20110614
  Receipt Date: 20110124
  Transmission Date: 20111010
  Serious: Yes (Hospitalization)
  Sender: FDA-Public Use
  Company Number: US-BAYER-201026873NA

PATIENT
  Age: 18 Year
  Sex: Female
  Weight: 79.365 kg

DRUGS (5)
  1. GLUMETZA [Concomitant]
     Indication: BLOOD INSULIN ABNORMAL
     Dosage: 500 MG, BID
  2. GLUMETZA [Concomitant]
     Indication: WEIGHT CONTROL
  3. YAZ [Suspect]
     Indication: CONTRACEPTION
     Route: 048
     Dates: start: 20080429, end: 20080701
  4. CYCLOBENZAPRINE [Concomitant]
     Dosage: 10 MG, UNK
  5. YASMIN [Suspect]
     Indication: PRODUCT USED FOR UNKNOWN INDICATION
     Route: 048
     Dates: start: 20080429, end: 20080701

REACTIONS (5)
  - DEEP VEIN THROMBOSIS [None]
  - PAIN IN EXTREMITY [None]
  - TENDONITIS [None]
  - OEDEMA PERIPHERAL [None]
  - EMOTIONAL DISTRESS [None]
